FAERS Safety Report 22789387 (Version 10)
Quarter: 2024Q2

REPORT INFORMATION
  Report Type: Spontaneous
  Country: CA (occurrence: CA)
  Receive Date: 20230804
  Receipt Date: 20240627
  Transmission Date: 20240716
  Serious: Yes (Hospitalization, Other)
  Sender: FDA-Public Use
  Company Number: CA-PFIZER INC-202300267728

PATIENT
  Age: 36 Year
  Sex: Female

DRUGS (9)
  1. XELJANZ [Suspect]
     Active Substance: TOFACITINIB CITRATE
     Indication: Colitis ulcerative
     Dosage: 10 MG, 2X/DAY FOR 8 WEEKS FOLLOWED BY 5 MG BID
     Route: 048
     Dates: start: 20230701
  2. XELJANZ [Suspect]
     Active Substance: TOFACITINIB CITRATE
     Dosage: 5 MG, 2X/DAY
     Route: 048
     Dates: start: 2023
  3. XELJANZ [Suspect]
     Active Substance: TOFACITINIB CITRATE
     Dosage: 5 MG, 2X/DAY (TAPERED TO XELJANZ 5MG BID)
     Route: 048
     Dates: start: 202309
  4. XELJANZ [Suspect]
     Active Substance: TOFACITINIB CITRATE
     Dosage: 10 MG, 2X/DAY
     Route: 048
     Dates: start: 202311
  5. XELJANZ [Suspect]
     Active Substance: TOFACITINIB CITRATE
     Dosage: 1 DF, 10MG Q AM AND 5MG QPM
     Route: 048
     Dates: start: 202403
  6. EFFEXOR [Concomitant]
     Active Substance: VENLAFAXINE HYDROCHLORIDE
     Indication: Anxiety
     Dosage: UNK
  7. MESALAMINE [Concomitant]
     Active Substance: MESALAMINE
     Dosage: UNK
  8. PREDNISONE [Concomitant]
     Active Substance: PREDNISONE
     Dosage: UNK, (WEANED OFF PREDNISONE)
  9. MESALAMINE [Concomitant]
     Active Substance: MESALAMINE
     Dosage: 100 MG
     Route: 054

REACTIONS (23)
  - Haemorrhage [Recovered/Resolved]
  - Haematochezia [Not Recovered/Not Resolved]
  - Pyrexia [Not Recovered/Not Resolved]
  - Vomiting [Not Recovered/Not Resolved]
  - Nausea [Unknown]
  - Upper respiratory tract infection [Unknown]
  - Decreased appetite [Unknown]
  - Inflammatory marker increased [Unknown]
  - Hepatic adenoma [Unknown]
  - Arterial disorder [Unknown]
  - Loss of therapeutic response [Unknown]
  - Defaecation urgency [Not Recovered/Not Resolved]
  - Stress [Unknown]
  - Vitamin D decreased [Not Recovered/Not Resolved]
  - Frequent bowel movements [Not Recovered/Not Resolved]
  - Nasopharyngitis [Unknown]
  - Chills [Unknown]
  - Hepatic lesion [Unknown]
  - Focal nodular hyperplasia [Unknown]
  - Uterine leiomyoma [Unknown]
  - Weight decreased [Unknown]
  - Lymphadenopathy [Unknown]
  - Off label use [Unknown]

NARRATIVE: CASE EVENT DATE: 20230101
